FAERS Safety Report 21543791 (Version 3)
Quarter: 2023Q4

REPORT INFORMATION
  Report Type: Report from Study
  Country: BR (occurrence: BR)
  Receive Date: 20221102
  Receipt Date: 20231109
  Transmission Date: 20240110
  Serious: Yes (Other)
  Sender: FDA-Public Use
  Company Number: BR-002147023-NVSC2022BR197095

PATIENT
  Age: 69 Year
  Sex: Female

DRUGS (2)
  1. KISQALI [Suspect]
     Active Substance: RIBOCICLIB
     Indication: Product used for unknown indication
     Dosage: 3 DOSAGE FORM
     Route: 065
  2. KISQALI [Suspect]
     Active Substance: RIBOCICLIB
     Dosage: 2 DOSAGE FORM
     Route: 065

REACTIONS (8)
  - Helminthic infection [Unknown]
  - Bone cancer [Unknown]
  - Malaise [Unknown]
  - Decreased immune responsiveness [Unknown]
  - Abdominal mass [Unknown]
  - Illness [Unknown]
  - Head discomfort [Unknown]
  - Abdominal pain [Unknown]
